FAERS Safety Report 21669199 (Version 1)
Quarter: 2022Q4

REPORT INFORMATION
  Report Type: Report from Study
  Country: AE (occurrence: AE)
  Receive Date: 20221201
  Receipt Date: 20221201
  Transmission Date: 20230112
  Serious: Yes (Death)
  Sender: FDA-Public Use
  Company Number: AE-BAYER-2022A163748

PATIENT
  Age: 34 Year
  Sex: Female

DRUGS (1)
  1. ADEMPAS [Suspect]
     Active Substance: RIOCIGUAT
     Indication: Pulmonary arterial hypertension
     Dosage: UNK
     Dates: start: 20201019

REACTIONS (1)
  - Death [Fatal]

NARRATIVE: CASE EVENT DATE: 20221124
